FAERS Safety Report 12780522 (Version 1)
Quarter: 2016Q3

REPORT INFORMATION
  Report Type: Spontaneous
  Country: US (occurrence: US)
  Receive Date: 20160926
  Receipt Date: 20160926
  Transmission Date: 20161109
  Serious: No
  Sender: FDA-Public Use
  Company Number: PHEH2016US024507

PATIENT
  Age: 47 Year
  Sex: Female

DRUGS (1)
  1. ESTRADIOL. [Suspect]
     Active Substance: ESTRADIOL
     Indication: PRODUCT USED FOR UNKNOWN INDICATION
     Dosage: 1 DF, BID (APPLY ONE PATCH TWICE A WEEK)
     Route: 062
     Dates: start: 20160811, end: 20160919

REACTIONS (1)
  - Oropharyngeal pain [Unknown]

NARRATIVE: CASE EVENT DATE: 20160811
